FAERS Safety Report 13536077 (Version 1)
Quarter: 2017Q2

REPORT INFORMATION
  Report Type: Spontaneous
  Country: CO (occurrence: CO)
  Receive Date: 20170511
  Receipt Date: 20170511
  Transmission Date: 20170830
  Serious: Yes (Death, Other)
  Sender: FDA-Public Use
  Company Number: CO-MYLANLABS-2017M1028105

PATIENT

DRUGS (3)
  1. CISPLATIN. [Concomitant]
     Active Substance: CISPLATIN
     Indication: CHEMOTHERAPY
     Dosage: 4 COURSES OVER A PERIOD OF 9 MONTHS
     Route: 065
  2. DOXORUBICIN [Suspect]
     Active Substance: DOXORUBICIN
     Indication: HEPATOBLASTOMA
     Dosage: 2 COURSES
     Route: 013
  3. DOXORUBICIN [Concomitant]
     Active Substance: DOXORUBICIN
     Indication: CHEMOTHERAPY
     Dosage: 4 COURSES OVER A PERIOD OF 9 MONTHS
     Route: 065

REACTIONS (4)
  - Epistaxis [Unknown]
  - Hepatic failure [Fatal]
  - Pulmonary alveolar haemorrhage [Fatal]
  - Coagulopathy [Fatal]
